FAERS Safety Report 7682669-1 (Version None)
Quarter: 2011Q3

REPORT INFORMATION
  Report Type: 
  Country: None (occurrence: None)
  Receive Date: 20110815
  Receipt Date: 20110506
  Transmission Date: 20111222
  Serious: Yes (Hospitalization)
  Sender: FDA-Public Use
  Company Number: FR-SHIRE-SPV1-2011-00742

PATIENT
  Sex: Male
  Weight: 21.4 kg

DRUGS (3)
  1. ACETAMINOPHEN [Concomitant]
     Indication: PREMEDICATION
     Dosage: 15 MG/KG, 1X/WEEK
     Route: 048
     Dates: start: 20070202
  2. ATARAX [Concomitant]
     Indication: PREMEDICATION
     Dosage: 0.5 MG/KG, 1X/WEEK
     Route: 048
     Dates: start: 20070202
  3. ELAPRASE [Suspect]
     Indication: MUCOPOLYSACCHARIDOSIS II
     Dosage: 12 MG, 1X/WEEK
     Route: 041
     Dates: start: 20070202

REACTIONS (1)
  - ARTHRITIS BACTERIAL [None]
